FAERS Safety Report 18417625 (Version 2)
Quarter: 2021Q1

REPORT INFORMATION
  Report Type: Spontaneous
  Country: US (occurrence: US)
  Receive Date: 20201022
  Receipt Date: 20210122
  Transmission Date: 20210419
  Serious: No
  Sender: FDA-Public Use
  Company Number: 2020SGN03020

PATIENT
  Sex: Female

DRUGS (1)
  1. TUKYSA [Suspect]
     Active Substance: TUCATINIB
     Indication: BREAST CANCER FEMALE
     Dosage: UNK, BID

REACTIONS (17)
  - Feeling abnormal [Unknown]
  - Renal impairment [Unknown]
  - Pollakiuria [Unknown]
  - Dizziness [Unknown]
  - Pruritus [Unknown]
  - Peripheral swelling [Unknown]
  - Haemoglobin decreased [Unknown]
  - Product dose omission issue [Unknown]
  - Rash [Unknown]
  - Swelling face [Unknown]
  - Hypersensitivity [Unknown]
  - Paraesthesia [Unknown]
  - Fatigue [Unknown]
  - Constipation [Unknown]
  - Inflammation [Unknown]
  - Memory impairment [Unknown]
  - Diarrhoea [Unknown]
